FAERS Safety Report 15704715 (Version 1)
Quarter: 2018Q4

REPORT INFORMATION
  Report Type: Spontaneous
  Country: US (occurrence: US)
  Receive Date: 20181210
  Receipt Date: 20181210
  Transmission Date: 20190205
  Serious: No
  Sender: FDA-Public Use
  Company Number: US-BAYER-2018-219590

PATIENT
  Sex: Female

DRUGS (1)
  1. MENOSTAR [Suspect]
     Active Substance: ESTRADIOL
     Indication: OSTEOPOROSIS
     Dosage: UNK
     Route: 062

REACTIONS (4)
  - Malaise [Not Recovered/Not Resolved]
  - Suspected counterfeit product [Not Recovered/Not Resolved]
  - Physical product label issue [Not Recovered/Not Resolved]
  - Product packaging issue [Not Recovered/Not Resolved]
